FAERS Safety Report 16981749 (Version 1)
Quarter: 2019Q4

REPORT INFORMATION
  Report Type: Spontaneous
  Country: US (occurrence: US)
  Receive Date: 20191101
  Receipt Date: 20191101
  Transmission Date: 20200122
  Serious: Yes (Other)
  Sender: FDA-Public Use
  Company Number: US-SUN PHARMACEUTICAL INDUSTRIES LTD-2019R1-225508

PATIENT
  Age: 80 Year
  Sex: Male

DRUGS (1)
  1. ACETAMINOPHEN. [Suspect]
     Active Substance: ACETAMINOPHEN
     Indication: BACK PAIN
     Dosage: 2 TO 3 TABLETS, DAILY
     Route: 065

REACTIONS (5)
  - Toxicity to various agents [Unknown]
  - Acute kidney injury [Unknown]
  - Acute hepatic failure [Recovered/Resolved]
  - Metabolic acidosis [Unknown]
  - Encephalopathy [Unknown]
